FAERS Safety Report 12681266 (Version 4)
Quarter: 2016Q4

REPORT INFORMATION
  Report Type: Report from Study
  Country: US (occurrence: US)
  Receive Date: 20160824
  Receipt Date: 20161107
  Transmission Date: 20170207
  Serious: Yes (Hospitalization, Other)
  Sender: FDA-Public Use
  Company Number: US-UCBSA-2016032216

PATIENT
  Sex: Female

DRUGS (7)
  1. LACOSAMIDE. [Suspect]
     Active Substance: LACOSAMIDE
     Dosage: MAX DOSE
     Route: 042
  2. ONFI [Concomitant]
     Active Substance: CLOBAZAM
     Dosage: MAX DOSE
  3. CANNABIDIOL [Concomitant]
     Active Substance: CANNABIDIOL
     Indication: EPILEPSY
     Dosage: UNK
  4. ONFI [Concomitant]
     Active Substance: CLOBAZAM
     Indication: EPILEPSY
     Dosage: UNK
  5. LACOSAMIDE. [Suspect]
     Active Substance: LACOSAMIDE
     Dosage: DOSE REDUCED
  6. KEPPRA [Suspect]
     Active Substance: LEVETIRACETAM
     Indication: PRODUCT USED FOR UNKNOWN INDICATION
     Dosage: UNK
  7. LACOSAMIDE. [Suspect]
     Active Substance: LACOSAMIDE
     Indication: EPILEPSY
     Dosage: UNK

REACTIONS (9)
  - Generalised tonic-clonic seizure [Recovering/Resolving]
  - Asthenia [Unknown]
  - Urinary tract infection [Unknown]
  - Somnolence [Unknown]
  - Myoclonic epilepsy [Recovering/Resolving]
  - Drug ineffective [Unknown]
  - Panic attack [Unknown]
  - Urticaria [Not Recovered/Not Resolved]
  - Post-traumatic stress disorder [Unknown]
